FAERS Safety Report 4676597-3 (Version None)
Quarter: 2005Q2

REPORT INFORMATION
  Report Type: 
  Country: None (occurrence: None)
  Receive Date: 20050525
  Receipt Date: 20050513
  Transmission Date: 20051028
  Serious: Yes (Other)
  Sender: FDA-Public Use
  Company Number: 2005060706

PATIENT
  Age: 29 Year
  Sex: Female
  Weight: 52 kg

DRUGS (8)
  1. ZELDOX [Suspect]
     Indication: SCHIZOPHRENIA
     Dosage: 80 MG (40 MG, 2 IN 1 D), ORAL
     Route: 048
     Dates: start: 20050121, end: 20050401
  2. LITHIUM CARBONATE [Concomitant]
  3. LAMICTAL [Concomitant]
  4. ........ [Concomitant]
  5. .................. [Concomitant]
  6. PROPRANOLOL [Concomitant]
  7. ALPRAZOLAM [Concomitant]
  8. RISPERDAL [Concomitant]

REACTIONS (10)
  - ANXIETY [None]
  - ASTHENIA [None]
  - BRADYCARDIA [None]
  - DIZZINESS [None]
  - ELECTROCARDIOGRAM CHANGE [None]
  - EXERCISE TOLERANCE DECREASED [None]
  - FATIGUE [None]
  - HYPOTENSION [None]
  - MALAISE [None]
  - SINUS ARRHYTHMIA [None]
